FAERS Safety Report 24962347 (Version 1)
Quarter: 2025Q1

REPORT INFORMATION
  Report Type: Spontaneous
  Country: ES (occurrence: ES)
  Receive Date: 20250212
  Receipt Date: 20250212
  Transmission Date: 20250409
  Serious: Yes (Hospitalization)
  Sender: TEVA
  Company Number: None

PATIENT
  Age: 92 Year
  Sex: Female
  Weight: 60 kg

DRUGS (6)
  1. HYDROCHLOROTHIAZIDE\OLMESARTAN MEDOXOMIL [Suspect]
     Active Substance: HYDROCHLOROTHIAZIDE\OLMESARTAN MEDOXOMIL
     Indication: Essential hypertension
     Route: 048
     Dates: start: 20170120, end: 20231215
  2. BETAHISTINA NORMON [Concomitant]
     Indication: Vertigo
     Dosage: 8.0 MG Q/24H; EFG, 60 TABLETS
     Route: 048
     Dates: start: 20161117
  3. AMLODIPINE [Suspect]
     Active Substance: AMLODIPINE BESYLATE
     Indication: Essential hypertension
     Dosage: 5.0 MG Q/24H; AMLODIPINE (2503A)
     Route: 048
     Dates: start: 20170309, end: 20231215
  4. LORAZEPAM [Concomitant]
     Active Substance: LORAZEPAM
     Indication: Generalised anxiety disorder
     Route: 048
     Dates: start: 20100413
  5. DEPRAX [Concomitant]
     Indication: Generalised anxiety disorder
     Route: 048
     Dates: start: 20170707
  6. CELECREM [Concomitant]
     Indication: Dermatitis
     Route: 061
     Dates: start: 20151216

REACTIONS (1)
  - Syncope [Recovered/Resolved]

NARRATIVE: CASE EVENT DATE: 20231215
